FAERS Safety Report 7413260-X (Version None)
Quarter: 2011Q2

REPORT INFORMATION
  Report Type: 
  Country: None (occurrence: None)
  Receive Date: 20110413
  Receipt Date: 20110407
  Transmission Date: 20111010
  Serious: Yes (Other)
  Sender: FDA-Public Use
  Company Number: US-PFIZER INC-2011077474

PATIENT
  Sex: Female
  Weight: 68.934 kg

DRUGS (10)
  1. ACETYLSALICYLIC ACID [Concomitant]
     Dosage: UNK
  2. BOTOX [Concomitant]
     Indication: MIGRAINE
     Dosage: UNK, EVERY THREE MONTHS
  3. POTASSIUM [Concomitant]
     Indication: BLOOD POTASSIUM DECREASED
     Dosage: 10 MEQ, UNK
  4. CALCIUM [Concomitant]
     Dosage: UNK
  5. EFFEXOR XR [Suspect]
     Indication: ANXIETY
  6. PRILOSEC [Concomitant]
     Indication: REFLUX OESOPHAGITIS
     Dosage: UNK
  7. FOLATE [Concomitant]
     Indication: BLOOD HOMOCYSTEINE DECREASED
     Dosage: UNK
  8. ALLEGRA [Concomitant]
     Indication: HYPERSENSITIVITY
     Dosage: UNK
  9. ALGIN [Concomitant]
     Dosage: UNK
  10. EFFEXOR XR [Suspect]
     Indication: HOT FLUSH
     Dosage: 37.5 MG, DAILY
     Route: 048
     Dates: start: 20110331

REACTIONS (2)
  - MUSCULAR WEAKNESS [None]
  - ARTHROPATHY [None]
